FAERS Safety Report 5633425-7 (Version None)
Quarter: 2008Q1

REPORT INFORMATION
  Report Type: 
  Country: None (occurrence: None)
  Receive Date: 20080219
  Receipt Date: 20080208
  Transmission Date: 20080703
  Serious: Yes (Hospitalization, Other)
  Sender: FDA-Public Use
  Company Number: 2007US002871

PATIENT
  Age: 14 Year
  Sex: Male

DRUGS (11)
  1. PROGRAF [Suspect]
     Indication: HEART TRANSPLANT
     Dosage: 1 MG, BID, OTHER; 2.5 MG, OTHER, OTHER; 3 MG, OTHER, OTHER; 2 MG, TID, ORAL
     Route: 048
     Dates: end: 20071119
  2. PROGRAF [Suspect]
     Indication: HEART TRANSPLANT
     Dosage: 1 MG, BID, OTHER; 2.5 MG, OTHER, OTHER; 3 MG, OTHER, OTHER; 2 MG, TID, ORAL
     Route: 048
     Dates: start: 20071108
  3. PROGRAF [Suspect]
     Indication: HEART TRANSPLANT
     Dosage: 1 MG, BID, OTHER; 2.5 MG, OTHER, OTHER; 3 MG, OTHER, OTHER; 2 MG, TID, ORAL
     Route: 048
     Dates: start: 20071119
  4. PROGRAF [Suspect]
     Indication: HEART TRANSPLANT
     Dosage: 1 MG, BID, OTHER; 2.5 MG, OTHER, OTHER; 3 MG, OTHER, OTHER; 2 MG, TID, ORAL
     Route: 048
     Dates: start: 20071126
  5. LASIX [Concomitant]
  6. ZANTAC 150 [Concomitant]
  7. SOLU-MEDROL [Concomitant]
  8. VANCOMYCIN [Concomitant]
  9. CELLCEPT [Concomitant]
  10. CYTOVENE (GANCIOCLOVIR) [Concomitant]
  11. CEFTRIAXONE (CETRIAXONE SODIUM) [Concomitant]

REACTIONS (16)
  - APNOEA [None]
  - BRAIN HERNIATION [None]
  - CARDIAC FAILURE HIGH OUTPUT [None]
  - CAROTID ARTERY STENOSIS [None]
  - CEREBRAL VENTRICLE DILATATION [None]
  - COMPLICATIONS OF TRANSPLANTED HEART [None]
  - GRAND MAL CONVULSION [None]
  - HAEMORRHAGE INTRACRANIAL [None]
  - HEADACHE [None]
  - HEART TRANSPLANT REJECTION [None]
  - IMMUNOSUPPRESSANT DRUG LEVEL DECREASED [None]
  - INCORRECT ROUTE OF DRUG ADMINISTRATION [None]
  - INTRACRANIAL PRESSURE INCREASED [None]
  - NO THERAPEUTIC RESPONSE [None]
  - POST PROCEDURAL COMPLICATION [None]
  - WEST NILE VIRAL INFECTION [None]
